FAERS Safety Report 21808525 (Version 2)
Quarter: 2024Q2

REPORT INFORMATION
  Report Type: Report from Study
  Country: US (occurrence: US)
  Receive Date: 20230103
  Receipt Date: 20240401
  Transmission Date: 20240715
  Serious: No
  Sender: FDA-Public Use
  Company Number: US-ABBVIE-4223370

PATIENT
  Sex: Female

DRUGS (1)
  1. HUMIRA [Suspect]
     Active Substance: ADALIMUMAB
     Indication: Psoriatic arthropathy
     Dosage: STRENGTH: 40 MILLIGRAM
     Route: 058

REACTIONS (4)
  - Musculoskeletal stiffness [Unknown]
  - Hyperhidrosis [Unknown]
  - Peripheral swelling [Unknown]
  - Erythema [Unknown]
